APPROVED DRUG PRODUCT: SPIRONOLACTONE AND HYDROCHLOROTHIAZIDE
Active Ingredient: HYDROCHLOROTHIAZIDE; SPIRONOLACTONE
Strength: 25MG;25MG
Dosage Form/Route: TABLET;ORAL
Application: A089534 | Product #001 | TE Code: AB
Applicant: SUN PHARMACEUTICAL INDUSTRIES INC
Approved: Jul 2, 1987 | RLD: No | RS: No | Type: RX